FAERS Safety Report 19239311 (Version 1)
Quarter: 2021Q2

REPORT INFORMATION
  Report Type: Spontaneous
  Country: JP (occurrence: JP)
  Receive Date: 20210511
  Receipt Date: 20210511
  Transmission Date: 20210717
  Serious: Yes (Other)
  Sender: FDA-Public Use
  Company Number: JP-LUPIN PHARMACEUTICALS INC.-2021-06319

PATIENT
  Age: 28 Year
  Sex: Female

DRUGS (7)
  1. HYDROCORTISONE. [Suspect]
     Active Substance: HYDROCORTISONE
     Indication: HYPERADRENOCORTICISM
     Dosage: 15 MILLIGRAM, QD
     Route: 048
  2. HYDROCORTISONE. [Interacting]
     Active Substance: HYDROCORTISONE
     Indication: SECONDARY ADRENOCORTICAL INSUFFICIENCY
     Dosage: 20 MILLIGRAM, QD
     Route: 048
  3. HYDROCORTISONE. [Interacting]
     Active Substance: HYDROCORTISONE
     Dosage: EVENING DOSE STOPPED
     Route: 048
  4. DROSPIRENONE AND ETHINYL ESTRADIOL [Interacting]
     Active Substance: DROSPIRENONE\ETHINYL ESTRADIOL
     Indication: ORAL CONTRACEPTION
     Dosage: 1 DOSAGE FORM, QD
     Route: 048
  5. METYRAPONE [Concomitant]
     Active Substance: METYRAPONE
     Indication: HYPERADRENOCORTICISM
     Dosage: 1500 MILLIGRAM, QD
     Route: 065
  6. AMLODIPINE [Interacting]
     Active Substance: AMLODIPINE BESYLATE
     Indication: HYPERTENSION
     Dosage: 5 MILLIGRAM, QD
     Route: 065
  7. DROSPIRENONE AND ETHINYL ESTRADIOL [Interacting]
     Active Substance: DROSPIRENONE\ETHINYL ESTRADIOL
     Indication: HEAVY MENSTRUAL BLEEDING

REACTIONS (10)
  - Condition aggravated [Recovering/Resolving]
  - Drug interaction [Recovering/Resolving]
  - Fatigue [Unknown]
  - Skin striae [Unknown]
  - Menstruation irregular [Unknown]
  - Cushingoid [Unknown]
  - Secondary adrenocortical insufficiency [Recovering/Resolving]
  - Blood corticotrophin decreased [Recovering/Resolving]
  - Acne [Unknown]
  - Cortisol increased [Recovering/Resolving]
